FAERS Safety Report 21987300 (Version 2)
Quarter: 2023Q1

REPORT INFORMATION
  Report Type: Spontaneous
  Country: CN (occurrence: CN)
  Receive Date: 20230214
  Receipt Date: 20230214
  Transmission Date: 20230418
  Serious: Yes (Other)
  Sender: FDA-Public Use
  Company Number: CN-BEH-2023155142

PATIENT
  Age: 84 Year
  Sex: Male

DRUGS (4)
  1. ALBURX [Suspect]
     Active Substance: ALBUMIN HUMAN
     Indication: Hypoproteinaemia
     Dosage: 10 GRAM, OD
     Route: 041
     Dates: start: 20230120, end: 20230122
  2. ALBURX [Suspect]
     Active Substance: ALBUMIN HUMAN
     Dosage: 10 GRAM, OD
     Route: 041
     Dates: start: 20230128, end: 20230130
  3. SODIUM CHLORIDE [Concomitant]
     Active Substance: SODIUM CHLORIDE
     Dosage: 50 MILLILITER, OD
     Route: 041
     Dates: start: 20230120, end: 20230122
  4. SODIUM CHLORIDE [Concomitant]
     Active Substance: SODIUM CHLORIDE
     Dosage: 50 MILLILITER, OD
     Route: 041
     Dates: start: 20230128, end: 20230130

REACTIONS (15)
  - Erythema multiforme [Recovering/Resolving]
  - Erythema [Recovering/Resolving]
  - Urticaria [Recovering/Resolving]
  - Pruritus [Recovering/Resolving]
  - Skin warm [Recovering/Resolving]
  - Erythema [Recovering/Resolving]
  - Oral mucosa erosion [Recovering/Resolving]
  - Dermatitis allergic [Recovering/Resolving]
  - Erythema [Recovering/Resolving]
  - Urticaria [Recovering/Resolving]
  - Pruritus [Recovering/Resolving]
  - Skin warm [Recovering/Resolving]
  - Hepatic function abnormal [Not Recovered/Not Resolved]
  - Alanine aminotransferase increased [Not Recovered/Not Resolved]
  - Aspartate aminotransferase increased [Not Recovered/Not Resolved]

NARRATIVE: CASE EVENT DATE: 20230122
